FAERS Safety Report 8560453-4 (Version None)
Quarter: 2012Q3

REPORT INFORMATION
  Report Type: 
  Country: None (occurrence: None)
  Receive Date: 20120723
  Receipt Date: 20120710
  Transmission Date: 20120928
  Serious: Yes (Hospitalization)
  Sender: FDA-Public Use
  Company Number: 2012HGS-003545

PATIENT
  Age: 44 Year
  Sex: Female

DRUGS (7)
  1. PARACETAMOL (PARACETAMOL) (PARACETAMOL) [Concomitant]
  2. BENLYSTA [Suspect]
     Indication: SYSTEMIC LUPUS ERYTHEMATOSUS
     Dosage: 640 MG, 1 IN, INTRAVENOUS DRIP 640 MG, 1 IN, INTRAVENOUS DRIP 640 MG, 1 IN, INTRAVENOUS DRIP
     Route: 041
     Dates: start: 20120313
  3. BENLYSTA [Suspect]
     Indication: SYSTEMIC LUPUS ERYTHEMATOSUS
     Dosage: 640 MG, 1 IN, INTRAVENOUS DRIP 640 MG, 1 IN, INTRAVENOUS DRIP 640 MG, 1 IN, INTRAVENOUS DRIP
     Route: 041
     Dates: start: 20120327
  4. BENLYSTA [Suspect]
     Indication: SYSTEMIC LUPUS ERYTHEMATOSUS
     Dosage: 640 MG, 1 IN, INTRAVENOUS DRIP 640 MG, 1 IN, INTRAVENOUS DRIP 640 MG, 1 IN, INTRAVENOUS DRIP
     Route: 041
     Dates: start: 20120412, end: 20120412
  5. QUENSYL (HYDROXYCHLOROQUINE SULFATE) (HYDROXYCHLOROQUINE SULFATE) [Concomitant]
  6. FENISTIL (DIMETINDENE MALEATE) (DIMETINDENE MALEATE) [Concomitant]
  7. PREDNISOLON (PREDNISOLONE) (PREDNISOLONE) [Concomitant]

REACTIONS (3)
  - CONDITION AGGRAVATED [None]
  - LEUKOPENIA [None]
  - THROMBOPHLEBITIS [None]
